APPROVED DRUG PRODUCT: LAMICTAL XR
Active Ingredient: LAMOTRIGINE
Strength: 300MG
Dosage Form/Route: TABLET, EXTENDED RELEASE;ORAL
Application: N022115 | Product #005 | TE Code: AB
Applicant: GLAXOSMITHKLINE LLC
Approved: Apr 14, 2010 | RLD: Yes | RS: No | Type: RX

PATENTS:
Patent 8637512 | Expires: Jan 7, 2029